FAERS Safety Report 14215737 (Version 5)
Quarter: 2018Q3

REPORT INFORMATION
  Report Type: Spontaneous
  Country: US (occurrence: US)
  Receive Date: 20171122
  Receipt Date: 20180828
  Transmission Date: 20181010
  Serious: Yes (Other)
  Sender: FDA-Public Use
  Company Number: US-INCYTE CORPORATION-2017IN009908

PATIENT

DRUGS (10)
  1. JAKAFI [Suspect]
     Active Substance: RUXOLITINIB
     Dosage: 10 MG IN AM, 15 MG IN PM
     Route: 048
     Dates: start: 20171017
  2. JAKAFI [Suspect]
     Active Substance: RUXOLITINIB
     Dosage: 15 MG, BID
     Route: 065
     Dates: start: 2017
  3. JAKAFI [Suspect]
     Active Substance: RUXOLITINIB
     Dosage: 15 MG, BID
     Route: 065
     Dates: start: 20171214
  4. JAKAFI [Suspect]
     Active Substance: RUXOLITINIB
     Dosage: 10 MG, BID
     Route: 048
  5. JAKAFI [Suspect]
     Active Substance: RUXOLITINIB
     Dosage: 15 MG IN AM, 7.5 MG IN PM
     Route: 048
     Dates: start: 20170808, end: 20170920
  6. JAKAFI [Suspect]
     Active Substance: RUXOLITINIB
     Dosage: 10 MG, BID
     Route: 048
     Dates: start: 20170921, end: 20171016
  7. HYDROXYUREA. [Concomitant]
     Active Substance: HYDROXYUREA
     Indication: PRODUCT USED FOR UNKNOWN INDICATION
     Dosage: 500 MG CURRENTLY 2X WEEKLY
     Route: 065
     Dates: start: 1998
  8. JAKAFI [Suspect]
     Active Substance: RUXOLITINIB
     Dosage: 15 MG, BID
     Route: 048
     Dates: start: 20140430
  9. JAKAFI [Suspect]
     Active Substance: RUXOLITINIB
     Indication: MYELOFIBROSIS
     Dosage: 15 MG, BID
     Route: 048
     Dates: start: 2012
  10. JAKAFI [Suspect]
     Active Substance: RUXOLITINIB
     Dosage: 15 MG, BID
     Route: 048
     Dates: start: 20130918

REACTIONS (31)
  - Osteosclerosis [Unknown]
  - Shift to the left [Unknown]
  - Splenomegaly [Unknown]
  - Leukoerythroblastosis [Unknown]
  - Fatigue [Unknown]
  - Pollakiuria [Unknown]
  - Blood glucose increased [Unknown]
  - Blood bilirubin increased [Unknown]
  - Anaemia macrocytic [Unknown]
  - Weight decreased [Unknown]
  - Decreased appetite [Unknown]
  - White blood cell count increased [Unknown]
  - Blood sodium decreased [Unknown]
  - Leukocytosis [Unknown]
  - Drug dose omission [Unknown]
  - Hepatomegaly [Unknown]
  - Sluggishness [Unknown]
  - Hypoaesthesia [Unknown]
  - Memory impairment [Unknown]
  - Thrombocytopenia [Unknown]
  - Cerebral atrophy [Unknown]
  - Red blood cell anisocytes present [Unknown]
  - Polychromasia [Unknown]
  - Lethargy [Unknown]
  - Uterine leiomyoma [Unknown]
  - Incorrect dose administered [Unknown]
  - Neuropathy peripheral [Unknown]
  - Nucleated red cells [Unknown]
  - Bone marrow eosinophilic leukocyte count increased [Unknown]
  - Gallbladder polyp [Unknown]
  - Platelet count decreased [Unknown]

NARRATIVE: CASE EVENT DATE: 200405
